FAERS Safety Report 4688895-8 (Version None)
Quarter: 2005Q2

REPORT INFORMATION
  Report Type: 
  Country: None (occurrence: None)
  Receive Date: 20050608
  Receipt Date: 20050428
  Transmission Date: 20051028
  Serious: No
  Sender: FDA-Public Use
  Company Number: 2005-BP-07141BP

PATIENT
  Age: 86 Year
  Sex: Male

DRUGS (7)
  1. SPIRIVA [Suspect]
     Indication: CHRONIC OBSTRUCTIVE PULMONARY DISEASE
     Dosage: 18 MCG (18 MCG), IH
     Route: 055
     Dates: start: 20040401
  2. ADVAIR DISKUS 100/50 [Concomitant]
  3. ZOCOR [Concomitant]
  4. ACETYLSALICYLIC ACID SRT [Concomitant]
  5. FUROSEMIDE [Concomitant]
  6. CASODEX [Concomitant]
  7. ALBUTEROL [Concomitant]

REACTIONS (1)
  - DYSPNOEA EXACERBATED [None]
